FAERS Safety Report 12727276 (Version 1)
Quarter: 2016Q3

REPORT INFORMATION
  Report Type: Spontaneous
  Country: FR (occurrence: FR)
  Receive Date: 20160909
  Receipt Date: 20160909
  Transmission Date: 20161109
  Serious: Yes (Hospitalization, Other)
  Sender: FDA-Public Use
  Company Number: FR-SHIRE-FR201611975

PATIENT
  Age: 91 Year
  Sex: Male

DRUGS (5)
  1. XAGRID [Suspect]
     Active Substance: ANAGRELIDE HYDROCHLORIDE
     Dosage: 1 MG (TWO 0.5 MG), UNKNOWN (PER DAY)
     Route: 048
     Dates: start: 20140325
  2. XAGRID [Suspect]
     Active Substance: ANAGRELIDE HYDROCHLORIDE
     Dosage: 2 MG (FOUR 0.5 MG), UNKNOWN (PER DAY)
     Route: 048
     Dates: start: 20140624
  3. XAGRID [Suspect]
     Active Substance: ANAGRELIDE HYDROCHLORIDE
     Dosage: 3 MG (SIX 0.5 MG), UNKNOWN (PER DAY)
     Route: 048
     Dates: start: 20140826, end: 20150224
  4. XAGRID [Suspect]
     Active Substance: ANAGRELIDE HYDROCHLORIDE
     Indication: ESSENTIAL THROMBOCYTHAEMIA
     Dosage: 0.05 MG, UNKNOWN (PER DAY)
     Route: 048
     Dates: start: 20140128
  5. XAGRID [Suspect]
     Active Substance: ANAGRELIDE HYDROCHLORIDE
     Dosage: 1.5 MG (THREE 0.5 MG), UNKNOWN (PER DAY)
     Route: 048
     Dates: start: 20140422

REACTIONS (4)
  - Pulmonary oedema [Unknown]
  - Ventricular hypokinesia [Not Recovered/Not Resolved]
  - Cardiac failure chronic [Not Recovered/Not Resolved]
  - Ejection fraction decreased [Not Recovered/Not Resolved]

NARRATIVE: CASE EVENT DATE: 2014
